FAERS Safety Report 25457193 (Version 1)
Quarter: 2025Q2

REPORT INFORMATION
  Report Type: Spontaneous
  Country: US (occurrence: US)
  Receive Date: 20250619
  Receipt Date: 20250619
  Transmission Date: 20250717
  Serious: Yes (Life-Threatening, Hospitalization)
  Sender: NOVO NORDISK
  Company Number: US-NOVOPROD-1459911

PATIENT
  Age: 55 Year
  Sex: Male

DRUGS (1)
  1. VICTOZA [Suspect]
     Active Substance: LIRAGLUTIDE
     Indication: Product used for unknown indication
     Route: 058
     Dates: start: 2018

REACTIONS (4)
  - Colon cancer [Unknown]
  - Metastases to liver [Unknown]
  - Neoplasm [Unknown]
  - HIV infection [Unknown]

NARRATIVE: CASE EVENT DATE: 20191201
